FAERS Safety Report 8468773-9 (Version None)
Quarter: 2012Q2

REPORT INFORMATION
  Report Type: 
  Country: None (occurrence: None)
  Receive Date: 20120626
  Receipt Date: 20120611
  Transmission Date: 20120825
  Serious: Yes (Other)
  Sender: FDA-Public Use
  Company Number: KR-ROCHE-652507

PATIENT

DRUGS (4)
  1. VINCRISTINE [Suspect]
     Indication: B-CELL LYMPHOMA
     Dosage: GIVEN ON DAY 1 OF EVERY CYCLE; DOSE: 1.4 MG/M2 ( MAXIMUM 2.0 MG)
     Route: 042
  2. PREDNISOLONE [Suspect]
     Indication: B-CELL LYMPHOMA
     Dosage: GIVEN ON DAYS 1 TO 5 OF EVERY CYCLE (REPEATED EVERY 3 WEEKS)
     Route: 048
  3. MABTHERA [Suspect]
     Indication: B-CELL LYMPHOMA
     Dosage: ON DAY 1 OF EVERY CYCLE
     Route: 065
  4. CYCLOPHOSPHAMIDE [Suspect]
     Indication: B-CELL LYMPHOMA
     Dosage: GIVEN ON DAY 1 OF EACH CYCLE
     Route: 042

REACTIONS (14)
  - NEUTROPENIA [None]
  - RASH [None]
  - ALOPECIA [None]
  - ABDOMINAL PAIN [None]
  - DIARRHOEA [None]
  - HYPERBILIRUBINAEMIA [None]
  - FEBRILE NEUTROPENIA [None]
  - ANAEMIA [None]
  - ASTHENIA [None]
  - THROMBOCYTOPENIA [None]
  - PERIPHERAL SENSORY NEUROPATHY [None]
  - PYREXIA [None]
  - ASPARTATE AMINOTRANSFERASE INCREASED [None]
  - ALANINE AMINOTRANSFERASE INCREASED [None]
